FAERS Safety Report 9312168 (Version 1)
Quarter: 2013Q2

REPORT INFORMATION
  Report Type: Spontaneous
  Country: US (occurrence: US)
  Receive Date: 20130528
  Receipt Date: 20130528
  Transmission Date: 20140414
  Serious: Yes (Other)
  Sender: FDA-Public Use
  Company Number: US-BAYER-2013-065115

PATIENT
  Sex: Female

DRUGS (1)
  1. ALKA-SELTZER PLUS COLD + FLU FORMULA NIGHT LIQUID GEL [Suspect]
     Dosage: UNK DF, UNK
     Route: 048

REACTIONS (2)
  - Choking [Recovered/Resolved]
  - Foreign body [Recovered/Resolved]
